FAERS Safety Report 8041749-1 (Version None)
Quarter: 2012Q1

REPORT INFORMATION
  Report Type: 
  Country: None (occurrence: None)
  Receive Date: 20120112
  Receipt Date: 20111216
  Transmission Date: 20120608
  Serious: Yes (Hospitalization, Other)
  Sender: FDA-Public Use
  Company Number: PHEH2011US011882

PATIENT
  Sex: Female

DRUGS (18)
  1. VERAPAMIL [Concomitant]
     Dosage: UNK
  2. FERROUS SULFATE TAB [Concomitant]
     Dosage: UNK
  3. BUSPIRONE HCL [Concomitant]
     Dosage: UNK
  4. LEXAPRO [Concomitant]
     Dosage: UNK
  5. HYDROCODIN [Concomitant]
     Dosage: UNK
  6. FUROSEMIDE [Concomitant]
     Dosage: UNK
  7. POTASSIUM CHLORIDE [Concomitant]
     Dosage: UNK
  8. CHLORPROMAZINE [Concomitant]
     Dosage: UNK
  9. METHOCARBAMOL [Concomitant]
     Dosage: UNK
  10. VIVELLE-DOT [Suspect]
     Dosage: 0.075 MG, TWICE WEEKLY
     Route: 062
     Dates: start: 20010101
  11. NEXIUM [Concomitant]
     Dosage: UNK
  12. IPRATROPIUM BROMIDE [Concomitant]
  13. ZETIA [Concomitant]
     Dosage: UNK
  14. SPIRIVA [Concomitant]
     Dosage: UNK
  15. ALPRAZOLAM [Concomitant]
     Dosage: UNK
  16. SIMVASTATIN [Concomitant]
     Dosage: UNK
  17. SINGULAIR [Concomitant]
     Dosage: UNK
  18. XOPENEX HFA [Concomitant]
     Indication: CHRONIC OBSTRUCTIVE PULMONARY DISEASE
     Dosage: UNK

REACTIONS (4)
  - AMNESIA [None]
  - ARTHROPATHY [None]
  - EAR INFECTION [None]
  - PNEUMONIA [None]
